FAERS Safety Report 24615934 (Version 1)
Quarter: 2024Q4

REPORT INFORMATION
  Report Type: Report from Study
  Country: CA (occurrence: CA)
  Receive Date: 20241113
  Receipt Date: 20241113
  Transmission Date: 20250115
  Serious: Yes (Hospitalization, Other)
  Sender: ABBVIE
  Company Number: CA-ABBVIE-5993084

PATIENT
  Age: 62 Year
  Sex: Female

DRUGS (1)
  1. RINVOQ [Suspect]
     Active Substance: UPADACITINIB
     Indication: Dermatitis atopic
     Dosage: FORM STRENGTH: 15MG
     Route: 048
     Dates: start: 20230502, end: 202407

REACTIONS (7)
  - Osteoarthritis [Recovering/Resolving]
  - Cardiac disorder [Unknown]
  - Diabetic complication [Unknown]
  - Erythema [Unknown]
  - Dry skin [Unknown]
  - Pruritus [Unknown]
  - Post procedural inflammation [Unknown]

NARRATIVE: CASE EVENT DATE: 20240101
